FAERS Safety Report 5527729-6 (Version None)
Quarter: 2007Q4

REPORT INFORMATION
  Report Type: 
  Country: None (occurrence: None)
  Receive Date: 20071128
  Receipt Date: 20071115
  Transmission Date: 20080405
  Serious: Yes (Hospitalization)
  Sender: FDA-Public Use
  Company Number: US-ELI_LILLY_AND_COMPANY-US200711003681

PATIENT
  Sex: Male

DRUGS (1)
  1. HUMATROPE [Suspect]
     Dosage: 5 U, UNKNOWN
     Route: 058

REACTIONS (2)
  - FOOT FRACTURE [None]
  - MYOCARDIAL INFARCTION [None]
